FAERS Safety Report 8500167-X (Version None)
Quarter: 2012Q3

REPORT INFORMATION
  Report Type: 
  Country: None (occurrence: None)
  Receive Date: 20120710
  Receipt Date: 20120702
  Transmission Date: 20120928
  Serious: Yes (Hospitalization, Disabling, Other)
  Sender: FDA-Public Use
  Company Number: US-PFIZER INC-2012158757

PATIENT
  Sex: Male
  Weight: 74 kg

DRUGS (3)
  1. NORVASC [Suspect]
     Indication: CARDIAC DISORDER
     Dosage: 10 MG, DAILY
  2. NORVASC [Suspect]
     Indication: HYPERTENSION
  3. LISINOPRIL [Concomitant]
     Indication: HYPERTENSION
     Dosage: UNK

REACTIONS (2)
  - MYOCARDIAL INFARCTION [None]
  - CORONARY ARTERY STENOSIS [None]
